FAERS Safety Report 9775643 (Version 1)
Quarter: 2013Q4

REPORT INFORMATION
  Report Type: Spontaneous
  Country: US (occurrence: US)
  Receive Date: 20131220
  Receipt Date: 20131220
  Transmission Date: 20140711
  Serious: No
  Sender: FDA-Public Use
  Company Number: US-BAYER-2013-152557

PATIENT
  Age: 48 Year
  Sex: Male

DRUGS (1)
  1. ULTRAVIST INJECTION [Suspect]
     Dosage: UNK UNK, ONCE
     Dates: start: 20131202, end: 20131202

REACTIONS (3)
  - Tongue disorder [None]
  - Sneezing [None]
  - Paraesthesia [None]
